FAERS Safety Report 6034102-3 (Version None)
Quarter: 2009Q1

REPORT INFORMATION
  Report Type: 
  Country: None (occurrence: None)
  Receive Date: 20090112
  Receipt Date: 20090109
  Transmission Date: 20090719
  Serious: Yes (Other)
  Sender: FDA-Public Use
  Company Number: US-PFIZER INC-2008088195

PATIENT
  Sex: Male
  Weight: 81.6 kg

DRUGS (8)
  1. GEODON [Suspect]
     Dates: start: 20081002, end: 20081001
  2. REMERON [Suspect]
     Indication: DEPRESSION
     Dates: start: 20081002, end: 20081001
  3. REMERON [Suspect]
     Indication: ANXIETY
  4. REMERON [Suspect]
     Indication: INSOMNIA
  5. MORPHINE [Concomitant]
  6. BUPIVACAINE [Concomitant]
  7. MIDAZOLAM HCL [Concomitant]
  8. BACLOFEN [Concomitant]

REACTIONS (5)
  - ABDOMINAL DISCOMFORT [None]
  - AGITATION [None]
  - IRRITABILITY [None]
  - SLEEP DISORDER [None]
  - TACHYCARDIA [None]
